FAERS Safety Report 23384688 (Version 1)
Quarter: 2024Q1

REPORT INFORMATION
  Report Type: Report from Study
  Country: CA (occurrence: CA)
  Receive Date: 20240109
  Receipt Date: 20240109
  Transmission Date: 20240410
  Serious: Yes (Other)
  Sender: FDA-Public Use
  Company Number: CA-TAKEDA-2022TUS065839

PATIENT
  Sex: Male

DRUGS (4)
  1. VEDOLIZUMAB [Suspect]
     Active Substance: VEDOLIZUMAB
     Indication: Colitis ulcerative
     Dosage: 300 MILLIGRAM
     Route: 042
     Dates: start: 20220901
  2. VEDOLIZUMAB [Suspect]
     Active Substance: VEDOLIZUMAB
     Dosage: 300 MILLIGRAM
     Route: 042
  3. Nova [Concomitant]
     Dosage: UNK UNK, TID
  4. MESALAMINE [Concomitant]
     Active Substance: MESALAMINE
     Dosage: 400 MILLIGRAM
     Dates: end: 20230712

REACTIONS (3)
  - Chronic obstructive pulmonary disease [Unknown]
  - General physical health deterioration [Unknown]
  - Nasopharyngitis [Unknown]
